FAERS Safety Report 10703036 (Version 1)
Quarter: 2015Q1

REPORT INFORMATION
  Report Type: Spontaneous
  Country: US (occurrence: US)
  Receive Date: 20150111
  Receipt Date: 20150111
  Transmission Date: 20150721
  Serious: Yes (Hospitalization, Other)
  Sender: FDA-Public Use
  Company Number: US-AMGEN-USASP2015001114

PATIENT
  Age: 67 Year
  Sex: Female

DRUGS (1)
  1. ENBREL [Suspect]
     Active Substance: ETANERCEPT
     Indication: RHEUMATOID ARTHRITIS
     Dosage: 25 MG, 2 TIMES/WK
     Route: 065
     Dates: start: 20040201, end: 20141230

REACTIONS (15)
  - Large intestine perforation [Recovered/Resolved]
  - Haemorrhoids [Not Recovered/Not Resolved]
  - Haematoma [Recovered/Resolved]
  - Laryngitis [Not Recovered/Not Resolved]
  - Incision site infection [Recovered/Resolved]
  - White blood cell count abnormal [Recovered/Resolved]
  - Productive cough [Not Recovered/Not Resolved]
  - Hypersensitivity [Not Recovered/Not Resolved]
  - Nasopharyngitis [Not Recovered/Not Resolved]
  - Road traffic accident [Recovered/Resolved]
  - Hypotension [Recovered/Resolved]
  - Vision blurred [Not Recovered/Not Resolved]
  - Diverticulitis [Recovered/Resolved]
  - Ocular hyperaemia [Not Recovered/Not Resolved]
  - Haemoglobin decreased [Recovered/Resolved]

NARRATIVE: CASE EVENT DATE: 201405
